FAERS Safety Report 12480384 (Version 2)
Quarter: 2016Q3

REPORT INFORMATION
  Report Type: Spontaneous
  Country: IT (occurrence: IT)
  Receive Date: 20160620
  Receipt Date: 20160706
  Transmission Date: 20161109
  Serious: Yes (Life-Threatening, Hospitalization)
  Sender: FDA-Public Use
  Company Number: IT-MYLANLABS-2016M1025329

PATIENT

DRUGS (2)
  1. RAMIPRIL. [Concomitant]
     Active Substance: RAMIPRIL
     Indication: PRODUCT USED FOR UNKNOWN INDICATION
  2. METFORMIN [Suspect]
     Active Substance: METFORMIN HYDROCHLORIDE
     Indication: DIABETES MELLITUS
     Dosage: UNK

REACTIONS (9)
  - Pulmonary hypertension [Unknown]
  - Hypoxic-ischaemic encephalopathy [Unknown]
  - Septic shock [Unknown]
  - Drug abuse [Unknown]
  - Toxicity to various agents [Unknown]
  - Multiple organ dysfunction syndrome [Unknown]
  - Decubitus ulcer [Unknown]
  - Lactic acidosis [Recovered/Resolved with Sequelae]
  - Metabolic acidosis [Unknown]

NARRATIVE: CASE EVENT DATE: 20160503
